FAERS Safety Report 7458020-9 (Version None)
Quarter: 2011Q2

REPORT INFORMATION
  Report Type: 
  Country: None (occurrence: None)
  Receive Date: 20110504
  Receipt Date: 20110428
  Transmission Date: 20111010
  Serious: Yes (Hospitalization)
  Sender: FDA-Public Use
  Company Number: US-B.I. PHARMACEUTICALS,INC./RIDGEFIELD-2011-BP-09268BP

PATIENT
  Sex: Male

DRUGS (9)
  1. PRADAXA [Suspect]
     Indication: ATRIAL FIBRILLATION
     Dosage: 300 MG
     Route: 048
     Dates: start: 20110127
  2. AMIODARONE HYDROCHLORIDE [Concomitant]
     Indication: ATRIAL FIBRILLATION
  3. LISINOPRIL [Concomitant]
     Indication: HYPERTENSION
     Dosage: 20 MG
  4. BARIATRIC FUSION [Concomitant]
     Indication: VITAMIN SUPPLEMENTATION
     Dosage: 40 MG
     Dates: start: 20110321
  5. METOPROLOL SUCCINATE EXTENDED RELEASE [Concomitant]
     Dosage: 50 MG
  6. KLOR-CON [Concomitant]
  7. PRAVASTATIN [Concomitant]
     Indication: BLOOD CHOLESTEROL
  8. FAMOTIDINE [Concomitant]
     Dosage: 20 MG
  9. FUROSEMIDE [Concomitant]
     Dosage: 40 MG

REACTIONS (4)
  - EPISTAXIS [None]
  - DYSPNOEA [None]
  - FLUID RETENTION [None]
  - ATRIAL FLUTTER [None]
